FAERS Safety Report 7929661-7 (Version None)
Quarter: 2011Q4

REPORT INFORMATION
  Report Type: 
  Country: None (occurrence: None)
  Receive Date: 20111121
  Receipt Date: 20111116
  Transmission Date: 20120403
  Serious: Yes (Other)
  Sender: FDA-Public Use
  Company Number: US-PFIZER INC-2011281549

PATIENT
  Sex: Male

DRUGS (8)
  1. ASPIRIN [Concomitant]
     Dosage: 325 MG, DAILY
  2. NOVOLOG [Concomitant]
     Dosage: UNK
  3. LYRICA [Suspect]
     Indication: PERIPHERAL NERVE INJURY
     Dosage: 150 MG, 3X/DAY
     Route: 048
     Dates: start: 20110101
  4. LYRICA [Suspect]
     Indication: PAIN IN EXTREMITY
  5. NOVOLIN 70/30 [Concomitant]
     Dosage: UNK
  6. LYRICA [Suspect]
     Indication: POSTOPERATIVE CARE
     Dosage: 150 MG, 2X/DAY
     Route: 048
  7. METOPROLOL [Concomitant]
     Dosage: UNK
  8. METFORMIN [Concomitant]
     Dosage: UNK

REACTIONS (4)
  - DRUG DEPENDENCE [None]
  - LIMB DISCOMFORT [None]
  - VISION BLURRED [None]
  - PAIN IN EXTREMITY [None]
